FAERS Safety Report 7074050-3 (Version None)
Quarter: 2010Q4

REPORT INFORMATION
  Report Type: 
  Country: None (occurrence: None)
  Receive Date: 20101029
  Receipt Date: 20101022
  Transmission Date: 20110411
  Serious: Yes (Other)
  Sender: FDA-Public Use
  Company Number: CHPA2010US16676

PATIENT
  Sex: Female

DRUGS (1)
  1. BENEFIBER ORANGE POWDER (NCH) [Suspect]
     Dosage: UNK , UNK
     Route: 048

REACTIONS (1)
  - CARDIAC OPERATION [None]
